FAERS Safety Report 6260094-8 (Version None)
Quarter: 2009Q3

REPORT INFORMATION
  Report Type: 
  Country: None (occurrence: None)
  Receive Date: 20090708
  Receipt Date: 20090626
  Transmission Date: 20100115
  Serious: Yes (Other)
  Sender: FDA-Public Use
  Company Number: GB-ELI_LILLY_AND_COMPANY-GB200906006616

PATIENT
  Sex: Female

DRUGS (1)
  1. YENTREVE [Suspect]

REACTIONS (1)
  - DYSPHAGIA [None]
